FAERS Safety Report 10423556 (Version 1)
Quarter: 2014Q3

REPORT INFORMATION
  Report Type: Spontaneous
  Country: US (occurrence: None)
  Receive Date: 20140722
  Receipt Date: 20140722
  Transmission Date: 20150326
  Serious: No
  Sender: FDA-Public Use
  Company Number: 163-10004-14063851

PATIENT
  Age: 65 Year
  Sex: Male
  Weight: 111.13 kg

DRUGS (1)
  1. OTEZLA [Suspect]
     Active Substance: APREMILAST
     Indication: PSORIATIC ARTHROPATHY
     Route: 048
     Dates: start: 20140506, end: 20140623

REACTIONS (4)
  - Decreased appetite [None]
  - Diarrhoea [None]
  - Nausea [None]
  - Depression [None]

NARRATIVE: CASE EVENT DATE: 20140509
